FAERS Safety Report 4761541-0 (Version None)
Quarter: 2005Q3

REPORT INFORMATION
  Report Type: 
  Country: None (occurrence: None)
  Receive Date: 20050830
  Receipt Date: 20050610
  Transmission Date: 20060218
  Serious: Yes (Hospitalization, Other)
  Sender: FDA-Public Use
  Company Number: USA050393240

PATIENT
  Age: 24 Year
  Sex: Female

DRUGS (6)
  1. SYMBYAX [Suspect]
     Indication: BIPOLAR I DISORDER
     Dates: start: 20040501, end: 20050301
  2. PROZAC [Suspect]
     Indication: DEPRESSION
     Dosage: 40 MG/1 DAY
     Dates: start: 20020701, end: 20040501
  3. LITHIUM CARBONATE [Concomitant]
  4. PROPULSID [Concomitant]
  5. PROPRANOLOL [Concomitant]
  6. KLONOPIN [Concomitant]

REACTIONS (6)
  - CONVULSION [None]
  - OVERDOSE [None]
  - SEDATION [None]
  - SLEEP DISORDER [None]
  - SUICIDE ATTEMPT [None]
  - WEIGHT INCREASED [None]
